FAERS Safety Report 9785788 (Version 2)
Quarter: 2014Q1

REPORT INFORMATION
  Report Type: Spontaneous
  Country: US (occurrence: US)
  Receive Date: 20131227
  Receipt Date: 20140321
  Transmission Date: 20141002
  Serious: Yes (Hospitalization)
  Sender: FDA-Public Use
  Company Number: US-BAYER-2013-156479

PATIENT
  Age: 21 Year
  Sex: Female
  Weight: 72.56 kg

DRUGS (4)
  1. MIRENA [Suspect]
     Indication: CONTRACEPTION
     Dosage: 20 MCG/24HR, CONT
     Route: 015
     Dates: start: 20110915, end: 20130116
  2. MIRENA [Suspect]
     Indication: MENORRHAGIA
  3. IMITREX [Concomitant]
     Indication: MIGRAINE
     Dosage: UNK
     Dates: start: 2007
  4. WELLBUTRIN [Concomitant]
     Dosage: 150 MG, DAILY

REACTIONS (6)
  - Uterine perforation [None]
  - Device dislocation [None]
  - Injury [None]
  - Pain [None]
  - Emotional distress [None]
  - Anxiety [None]
